FAERS Safety Report 16421118 (Version 1)
Quarter: 2019Q3

REPORT INFORMATION
  Report Type: Spontaneous
  Country: US (occurrence: US)
  Receive Date: 20190611
  Receipt Date: 20190611
  Transmission Date: 20191004
  Serious: Yes (Life-Threatening, Hospitalization, Disabling)
  Sender: FDA-Public Use
  Company Number: None

PATIENT
  Age: 26 Year
  Sex: Male
  Weight: 87.75 kg

DRUGS (3)
  1. HALDOL [Concomitant]
     Active Substance: HALOPERIDOL
  2. FLUOXETINE [Concomitant]
     Active Substance: FLUOXETINE HYDROCHLORIDE
  3. CLOZAPINE 100MG,CLOZAPINE 100MG,CLOZAPINE 100MGCLOZAPINE 50MG [Suspect]
     Active Substance: CLOZAPINE
     Indication: MENTAL DISORDER
     Dosage: ?          QUANTITY:4 TABLET(S);?
     Route: 048

REACTIONS (15)
  - Rebound psychosis [None]
  - Wound infection [None]
  - Lower limb fracture [None]
  - Therapy change [None]
  - Concussion [None]
  - Condition aggravated [None]
  - Victim of abuse [None]
  - Obsessive thoughts [None]
  - Compulsions [None]
  - Physical assault [None]
  - Multiple fractures [None]
  - Sports injury [None]
  - Skin laceration [None]
  - Onychomadesis [None]
  - Intentional self-injury [None]

NARRATIVE: CASE EVENT DATE: 20180606
